FAERS Safety Report 5277555-0 (Version None)
Quarter: 2007Q1

REPORT INFORMATION
  Report Type: 
  Country: None (occurrence: None)
  Receive Date: 20061214
  Receipt Date: 20051025
  Transmission Date: 20070707
  Serious: No
  Sender: FDA-Public Use
  Company Number: 05P-163-0314793-00

PATIENT
  Age: 59 Year
  Sex: Female

DRUGS (1)
  1. TARKA [Suspect]
     Indication: HYPERTENSION
     Dosage: 2 MG/240 MG QD
     Dates: start: 20050603, end: 20050726

REACTIONS (1)
  - HEPATIC ENZYME INCREASED [None]
